FAERS Safety Report 7602520-5 (Version None)
Quarter: 2011Q3

REPORT INFORMATION
  Report Type: 
  Country: None (occurrence: None)
  Receive Date: 20110707
  Receipt Date: 20110421
  Transmission Date: 20111222
  Serious: Yes (Hospitalization, Other)
  Sender: FDA-Public Use
  Company Number: US-CYPR-2011-000014

PATIENT
  Sex: Female
  Weight: 56 kg

DRUGS (8)
  1. COREG [Concomitant]
  2. CRESTOR [Concomitant]
  3. CLOPIDOGREL OR PLACEBO 75 MG (BRISTOL-MYERS SQUIBB/SANOFI-AVENTIS) [Suspect]
     Indication: ANTIPLATELET THERAPY
     Dosage: (75 MG QD ORAL)
     Route: 048
     Dates: start: 20110201, end: 20110412
  4. ASPIRIN [Suspect]
     Indication: CORONARY ARTERY DISEASE
     Dosage: (81 MG QD ORAL) ; (325 MG QD ORAL)
     Route: 048
     Dates: start: 20080402, end: 20100607
  5. ASPIRIN [Suspect]
     Indication: CORONARY ARTERY DISEASE
     Dosage: (81 MG QD ORAL) ; (325 MG QD ORAL)
     Route: 048
     Dates: start: 20100607
  6. CYPHER STENT [Concomitant]
  7. RANEXA [Concomitant]
  8. FAMOTIDINE [Concomitant]

REACTIONS (1)
  - HUMERUS FRACTURE [None]
